FAERS Safety Report 26125726 (Version 1)
Quarter: 2025Q4

REPORT INFORMATION
  Report Type: Spontaneous
  Country: AU (occurrence: None)
  Receive Date: 20251205
  Receipt Date: 20251205
  Transmission Date: 20260118
  Serious: Yes (Other)
  Sender: UCB
  Company Number: AU-UCBSA-2025076151

PATIENT
  Age: 12 Year
  Weight: 30 kg

DRUGS (1)
  1. FINTEPLA [Suspect]
     Active Substance: FENFLURAMINE
     Indication: Seizure
     Dosage: 4.8 MILLIGRAM, 2X/DAY (BID)

REACTIONS (3)
  - Mitral valve incompetence [Unknown]
  - Tricuspid valve incompetence [Unknown]
  - Left atrial dilatation [Unknown]
